FAERS Safety Report 6953680-0 (Version None)
Quarter: 2010Q3

REPORT INFORMATION
  Report Type: 
  Country: None (occurrence: None)
  Receive Date: 20100829
  Receipt Date: 20100621
  Transmission Date: 20110219
  Serious: No
  Sender: FDA-Public Use
  Company Number: US-ABBOTT-10P-163-0652805-00

PATIENT
  Sex: Female
  Weight: 73.094 kg

DRUGS (8)
  1. NIASPAN [Suspect]
     Indication: HYPERLIPIDAEMIA
     Dosage: AT BEDTIME
     Dates: start: 20100607, end: 20100621
  2. NIASPAN [Suspect]
     Indication: DRUG INTOLERANCE
  3. MVT [Concomitant]
     Indication: PRODUCT USED FOR UNKNOWN INDICATION
  4. FIBERTAB [Concomitant]
     Indication: PRODUCT USED FOR UNKNOWN INDICATION
  5. LORATADINE [Concomitant]
     Indication: PRODUCT USED FOR UNKNOWN INDICATION
  6. FLAX SEED [Concomitant]
     Indication: PRODUCT USED FOR UNKNOWN INDICATION
  7. B12 SL [Concomitant]
     Indication: PRODUCT USED FOR UNKNOWN INDICATION
  8. VIT D [Concomitant]
     Indication: PRODUCT USED FOR UNKNOWN INDICATION

REACTIONS (5)
  - BURNING SENSATION [None]
  - RASH PAPULAR [None]
  - RASH PRURITIC [None]
  - SKIN BURNING SENSATION [None]
  - SWELLING FACE [None]
